FAERS Safety Report 26005051 (Version 1)
Quarter: 2025Q4

REPORT INFORMATION
  Report Type: Spontaneous
  Country: CA (occurrence: CA)
  Receive Date: 20251106
  Receipt Date: 20251106
  Transmission Date: 20260118
  Serious: Yes (Other)
  Sender: AUROBINDO
  Company Number: CA-AUROBINDO-AUR-APL-2025-055937

PATIENT
  Age: 61 Year
  Sex: Male

DRUGS (7)
  1. TOFACITINIB [Suspect]
     Active Substance: TOFACITINIB
     Indication: Product used for unknown indication
     Dosage: UNK
     Route: 065
  2. LANREOTIDE ACETATE [Suspect]
     Active Substance: LANREOTIDE ACETATE
     Indication: Gastroenteropancreatic neuroendocrine tumour disease
     Dosage: 120 MILLIGRAM, EVERY WEEK FOR 1 MONTH
     Route: 058
  3. CAPTEM [Concomitant]
     Indication: Product used for unknown indication
     Dosage: UNK
     Route: 065
  4. ONDANSETRON [Concomitant]
     Active Substance: ONDANSETRON
     Indication: Product used for unknown indication
     Dosage: UNK
     Route: 065
  5. OXOLAMINE CITRATE [Concomitant]
     Active Substance: OXOLAMINE CITRATE
     Indication: Product used for unknown indication
     Dosage: UNK
     Route: 065
  6. TEMOZOLOMIDE [Concomitant]
     Active Substance: TEMOZOLOMIDE
     Indication: Product used for unknown indication
     Dosage: UNK
     Route: 065
  7. XELODA [Concomitant]
     Active Substance: CAPECITABINE
     Indication: Product used for unknown indication
     Dosage: UNK
     Route: 065

REACTIONS (18)
  - Abdominal pain [Not Recovered/Not Resolved]
  - Abdominal pain upper [Not Recovered/Not Resolved]
  - Arthralgia [Not Recovered/Not Resolved]
  - Back pain [Not Recovered/Not Resolved]
  - Benign neoplasm of thyroid gland [Not Recovered/Not Resolved]
  - Blood bilirubin increased [Not Recovered/Not Resolved]
  - Bowel movement irregularity [Not Recovered/Not Resolved]
  - Constipation [Not Recovered/Not Resolved]
  - Flatulence [Not Recovered/Not Resolved]
  - Hepatic cancer [Not Recovered/Not Resolved]
  - Malignant neoplasm progression [Not Recovered/Not Resolved]
  - Myalgia [Not Recovered/Not Resolved]
  - Nausea [Not Recovered/Not Resolved]
  - Oral discomfort [Not Recovered/Not Resolved]
  - Pain [Not Recovered/Not Resolved]
  - Periodontal disease [Not Recovered/Not Resolved]
  - Salivary gland disorder [Not Recovered/Not Resolved]
  - Tongue dry [Not Recovered/Not Resolved]
